FAERS Safety Report 6464080-4 (Version None)
Quarter: 2009Q4

REPORT INFORMATION
  Report Type: 
  Country: None (occurrence: None)
  Receive Date: 20091110
  Receipt Date: 20090722
  Transmission Date: 20100525
  Serious: No
  Sender: FDA-Public Use
  Company Number: 1000007510

PATIENT
  Age: 55 Year
  Sex: Female

DRUGS (9)
  1. SAVELLA [Suspect]
     Indication: FIBROMYALGIA
     Dosage: 12.5 MG (12.5 MG, 1 IN 1 D), ORAL; 25 MG (12.5 MG, 2 IN 1 ),ORAL
     Route: 048
     Dates: start: 20090710, end: 20090710
  2. SAVELLA [Suspect]
     Indication: FIBROMYALGIA
     Dosage: 12.5 MG (12.5 MG, 1 IN 1 D), ORAL; 25 MG (12.5 MG, 2 IN 1 ),ORAL
     Route: 048
     Dates: start: 20090711, end: 20090712
  3. SAVELLA [Suspect]
     Indication: FIBROMYALGIA
     Dosage: 50 MG (25 MG, 2 IN 1 D),ORAL
     Route: 048
     Dates: start: 20090713, end: 20090713
  4. GABAPENTIN [Concomitant]
  5. AMITRIPTXLINE [Concomitant]
  6. SPIRONOLACTONE [Concomitant]
  7. MELOXICAM [Concomitant]
  8. SUPPLEMENTS (NOS) [Concomitant]
  9. NICOTINAMIDE [Concomitant]

REACTIONS (1)
  - EMOTIONAL DISORDER [None]
